FAERS Safety Report 18351284 (Version 1)
Quarter: 2020Q4

REPORT INFORMATION
  Report Type: Spontaneous
  Country: US (occurrence: US)
  Receive Date: 20201006
  Receipt Date: 20201006
  Transmission Date: 20210114
  Serious: Yes (Other)
  Sender: FDA-Public Use
  Company Number: US-PARATEK PHARMACEUTICALS, INC.-2020PTK00238

PATIENT
  Sex: Female

DRUGS (1)
  1. NUZYRA [Suspect]
     Active Substance: OMADACYCLINE
     Indication: ILL-DEFINED DISORDER
     Dosage: UNK

REACTIONS (3)
  - Off label use [Unknown]
  - Osteomyelitis [Not Recovered/Not Resolved]
  - Treatment noncompliance [Unknown]
